FAERS Safety Report 12968930 (Version 1)
Quarter: 2016Q4

REPORT INFORMATION
  Report Type: Spontaneous
  Country: FR (occurrence: FR)
  Receive Date: 20161123
  Receipt Date: 20161123
  Transmission Date: 20170207
  Serious: Yes (Hospitalization)
  Sender: FDA-Public Use
  Company Number: FR-PFIZER INC-2016539433

PATIENT
  Age: 55 Year
  Sex: Female

DRUGS (9)
  1. TAHOR [Suspect]
     Active Substance: ATORVASTATIN CALCIUM
     Dosage: 80 MG, DAILY
     Route: 048
     Dates: start: 201608, end: 201609
  2. CARDENSIEL [Concomitant]
     Active Substance: BISOPROLOL FUMARATE
  3. TRIATEC /00885601/ [Concomitant]
     Active Substance: RAMIPRIL
  4. ZELITREX [Concomitant]
     Active Substance: VALACYCLOVIR HYDROCHLORIDE
  5. FOLINORAL [Concomitant]
     Active Substance: LEUCOVORIN CALCIUM
  6. KARDEGIC [Concomitant]
     Active Substance: ASPIRIN LYSINE
  7. BACTRIM [Concomitant]
     Active Substance: SULFAMETHOXAZOLE\TRIMETHOPRIM
  8. OMEPRAZOLE. [Concomitant]
     Active Substance: OMEPRAZOLE
  9. DIFFU K [Concomitant]
     Active Substance: POTASSIUM CHLORIDE

REACTIONS (2)
  - Myositis [Recovering/Resolving]
  - Fall [Recovering/Resolving]

NARRATIVE: CASE EVENT DATE: 20160905
